FAERS Safety Report 9822225 (Version 2)
Quarter: 2014Q1

REPORT INFORMATION
  Report Type: Spontaneous
  Country: US (occurrence: US)
  Receive Date: 20140116
  Receipt Date: 20140220
  Transmission Date: 20141002
  Serious: Yes (Life-Threatening, Hospitalization, Other)
  Sender: FDA-Public Use
  Company Number: US-009507513-1401USA007076

PATIENT
  Sex: Female
  Weight: 80.73 kg

DRUGS (5)
  1. JANUVIA [Suspect]
     Indication: TYPE 2 DIABETES MELLITUS
     Dosage: 50 MG, QD
     Route: 048
     Dates: start: 20110216, end: 20121020
  2. JANUMET [Suspect]
     Indication: TYPE 2 DIABETES MELLITUS
     Dosage: 50 MG/500 MG, BID
     Route: 048
     Dates: start: 20110216
  3. AMARYL [Concomitant]
     Indication: TYPE 2 DIABETES MELLITUS
     Dosage: 4 MG, QD
     Route: 048
  4. METFORMIN [Concomitant]
     Indication: TYPE 2 DIABETES MELLITUS
  5. GLIMEPIRIDE [Concomitant]
     Indication: TYPE 2 DIABETES MELLITUS

REACTIONS (15)
  - Adenocarcinoma pancreas [Unknown]
  - Rotator cuff repair [Unknown]
  - Surgery [Unknown]
  - Oesophagogastric fundoplasty [Unknown]
  - Hypothyroidism [Unknown]
  - Hypertension [Unknown]
  - Arthritis [Unknown]
  - Loose tooth [Unknown]
  - Toe operation [Unknown]
  - Neck surgery [Unknown]
  - Elbow operation [Unknown]
  - Hysterectomy [Unknown]
  - Gastrooesophageal reflux disease [Unknown]
  - Drug ineffective [Unknown]
  - Headache [Unknown]
